FAERS Safety Report 13879954 (Version 1)
Quarter: 2017Q3

REPORT INFORMATION
  Report Type: Spontaneous
  Country: BR (occurrence: BR)
  Receive Date: 20170818
  Receipt Date: 20170818
  Transmission Date: 20171127
  Serious: Yes (Hospitalization, Other)
  Sender: FDA-Public Use
  Company Number: BR-JNJFOC-20170812478

PATIENT
  Age: 67 Year
  Sex: Female

DRUGS (2)
  1. INVOKANA [Suspect]
     Active Substance: CANAGLIFLOZIN
     Indication: DIABETES MELLITUS
     Route: 048
     Dates: start: 2017, end: 20170812
  2. INVOKANA [Suspect]
     Active Substance: CANAGLIFLOZIN
     Indication: DIABETES MELLITUS
     Route: 048
     Dates: start: 20170119, end: 2017

REACTIONS (7)
  - Increased appetite [Not Recovered/Not Resolved]
  - Nausea [Recovering/Resolving]
  - Weight decreased [Recovered/Resolved]
  - Cerebrovascular accident [Unknown]
  - Vulvovaginal discomfort [Recovering/Resolving]
  - Polyuria [Recovered/Resolved]
  - Underdose [Unknown]

NARRATIVE: CASE EVENT DATE: 2017
